FAERS Safety Report 10486658 (Version 1)
Quarter: 2014Q4

REPORT INFORMATION
  Report Type: Spontaneous
  Country: US (occurrence: US)
  Receive Date: 20141001
  Receipt Date: 20141001
  Transmission Date: 20150528
  Serious: No
  Sender: FDA-Public Use
  Company Number: US-ELI_LILLY_AND_COMPANY-US201409002699

PATIENT
  Sex: Female

DRUGS (3)
  1. CYMBALTA [Suspect]
     Active Substance: DULOXETINE HYDROCHLORIDE
     Indication: DEPRESSION
     Dosage: 60 MG, BID
     Route: 065
     Dates: start: 2012, end: 20140820
  2. CYMBALTA [Suspect]
     Active Substance: DULOXETINE HYDROCHLORIDE
     Indication: FIBROMYALGIA
     Dosage: 60 MG, QD
     Route: 065
     Dates: start: 20140820
  3. DILANTIN [Concomitant]
     Active Substance: PHENYTOIN

REACTIONS (9)
  - Decreased appetite [Unknown]
  - Drug withdrawal syndrome [Unknown]
  - Anger [Unknown]
  - Irritability [Unknown]
  - Depression [Unknown]
  - Crying [Unknown]
  - Memory impairment [Unknown]
  - Anxiety [Unknown]
  - Panic attack [Unknown]
